FAERS Safety Report 10392572 (Version 3)
Quarter: 2015Q1

REPORT INFORMATION
  Report Type: Spontaneous
  Country: US (occurrence: US)
  Receive Date: 20140819
  Receipt Date: 20150128
  Transmission Date: 20150720
  Serious: Yes (Hospitalization, Other)
  Sender: FDA-Public Use
  Company Number: US-PFIZER INC-2014228547

PATIENT
  Sex: Male

DRUGS (2)
  1. TIKOSYN [Suspect]
     Active Substance: DOFETILIDE
     Indication: HEART RATE INCREASED
     Dosage: 3 DF OF 125 MCG, 2X/DAY
     Dates: start: 2014
  2. TIKOSYN [Suspect]
     Active Substance: DOFETILIDE
     Dosage: UNK

REACTIONS (1)
  - Atrial fibrillation [Unknown]

NARRATIVE: CASE EVENT DATE: 2014
